FAERS Safety Report 12910376 (Version 1)
Quarter: 2016Q4

REPORT INFORMATION
  Report Type: Spontaneous
  Country: DE (occurrence: DE)
  Receive Date: 20161104
  Receipt Date: 20161104
  Transmission Date: 20170207
  Serious: Yes (Death)
  Sender: FDA-Public Use
  Company Number: DE-ROCHE-1850332

PATIENT
  Sex: Female

DRUGS (1)
  1. MABTHERA [Suspect]
     Active Substance: RITUXIMAB
     Indication: LYMPHOMA
     Dosage: ADMINISTATION FOR 3 YEARS
     Route: 058

REACTIONS (3)
  - Lung cancer metastatic [Fatal]
  - Lung neoplasm malignant [Fatal]
  - Hemiplegia [Fatal]
